FAERS Safety Report 9850570 (Version 1)
Quarter: 2013Q4

REPORT INFORMATION
  Report Type: Spontaneous
  Country: US (occurrence: None)
  Receive Date: 20131226
  Receipt Date: 20131226
  Transmission Date: 20140711
  Serious: Yes (Disabling)
  Sender: FDA-Public Use
  Company Number: PHEH2012US010332

PATIENT
  Age: 65 Year
  Sex: Female

DRUGS (1)
  1. AFINITOR (RAD) UNKNOWN [Suspect]
     Route: 048
     Dates: start: 20120331

REACTIONS (4)
  - Pain in extremity [None]
  - Metastases to bone [None]
  - Thrombosis [None]
  - Oedema peripheral [None]
